FAERS Safety Report 4654608-9 (Version None)
Quarter: 2005Q2

REPORT INFORMATION
  Report Type: 
  Country: None (occurrence: None)
  Receive Date: 20050503
  Receipt Date: 20050503
  Transmission Date: 20051028
  Serious: Yes (Life-Threatening, Hospitalization)
  Sender: FDA-Public Use
  Company Number: None

PATIENT
  Age: 47 Year
  Sex: Male
  Weight: 112 kg

DRUGS (6)
  1. CITALOPRAM HYDROBROMIDE [Suspect]
     Indication: DEPRESSION
     Dosage: 20MG  P.O.  DAILY
     Route: 048
     Dates: start: 20041101, end: 20050401
  2. SIMVASTATIN [Concomitant]
  3. GABAPENTIN [Concomitant]
  4. DIVALPROEX SODIUM [Concomitant]
  5. CLONAZEPAM [Concomitant]
  6. PROCHLORPERAZINE [Concomitant]

REACTIONS (1)
  - SEROTONIN SYNDROME [None]
